FAERS Safety Report 6867817-5 (Version None)
Quarter: 2010Q3

REPORT INFORMATION
  Report Type: 
  Country: None (occurrence: None)
  Receive Date: 20100722
  Receipt Date: 20100713
  Transmission Date: 20110219
  Serious: Yes (Hospitalization, Other)
  Sender: FDA-Public Use
  Company Number: US-BAXTER-2010BH017554

PATIENT
  Age: 79 Year
  Sex: Female

DRUGS (3)
  1. DIANEAL [Suspect]
     Indication: PERITONEAL DIALYSIS
     Route: 033
     Dates: start: 20080101, end: 20100101
  2. DIANEAL [Suspect]
     Route: 033
     Dates: start: 20080101, end: 20100101
  3. PAIN MEDICATION [Suspect]
     Indication: ARTHRALGIA
     Route: 065
     Dates: start: 20090101

REACTIONS (3)
  - INTESTINAL OBSTRUCTION [None]
  - PERITONEAL DIALYSIS COMPLICATION [None]
  - PERITONITIS BACTERIAL [None]
